FAERS Safety Report 10596261 (Version 2)
Quarter: 2014Q4

REPORT INFORMATION
  Report Type: Spontaneous
  Country: US (occurrence: US)
  Receive Date: 20141120
  Receipt Date: 20141120
  Transmission Date: 20150529
  Serious: Yes (Hospitalization, Other)
  Sender: FDA-Public Use
  Company Number: US-GILEAD-2014-0105665

PATIENT
  Age: 14 Year
  Sex: Female

DRUGS (4)
  1. LETAIRIS [Suspect]
     Active Substance: AMBRISENTAN
     Indication: VENTRICULAR SEPTAL DEFECT
  2. LETAIRIS [Suspect]
     Active Substance: AMBRISENTAN
     Indication: PULMONARY HYPERTENSION
     Dosage: 10 MG, UNK
     Route: 065
     Dates: start: 20130513
  3. LETAIRIS [Suspect]
     Active Substance: AMBRISENTAN
     Indication: ATRIAL SEPTAL DEFECT
  4. LETAIRIS [Suspect]
     Active Substance: AMBRISENTAN
     Indication: PORTAL SHUNT

REACTIONS (1)
  - Shunt occlusion [Unknown]
